FAERS Safety Report 11421395 (Version 2)
Quarter: 2015Q3

REPORT INFORMATION
  Report Type: Spontaneous
  Country: US (occurrence: US)
  Receive Date: 20150826
  Receipt Date: 20150916
  Transmission Date: 20151125
  Serious: Yes (Other)
  Sender: FDA-Public Use
  Company Number: US-BAYER-2015-404404

PATIENT
  Sex: Female

DRUGS (1)
  1. MIRENA [Suspect]
     Active Substance: LEVONORGESTREL
     Dosage: 20 MCG/24HR, CONT
     Route: 015

REACTIONS (8)
  - Uterine perforation [Unknown]
  - Polyarthritis [Unknown]
  - Arthralgia [Unknown]
  - Scar [Unknown]
  - Pelvic pain [Unknown]
  - C-reactive protein increased [Unknown]
  - Inflammation [Unknown]
  - Hot flush [Unknown]

NARRATIVE: CASE EVENT DATE: 2010
